FAERS Safety Report 6511932-2 (Version None)
Quarter: 2009Q4

REPORT INFORMATION
  Report Type: 
  Country: None (occurrence: None)
  Receive Date: 20091222
  Receipt Date: 20090616
  Transmission Date: 20100525
  Serious: No
  Sender: FDA-Public Use
  Company Number: US-ASTRAZENECA-2009UW15331

PATIENT
  Age: 19212 Day
  Sex: Female

DRUGS (6)
  1. CRESTOR [Suspect]
     Route: 048
     Dates: start: 20090612
  2. CYMBALTA [Concomitant]
  3. NEXIUM [Concomitant]
  4. PERCOCET [Concomitant]
  5. XANAX [Concomitant]
  6. CHF MEDICATIONS [Concomitant]

REACTIONS (3)
  - HYPERHIDROSIS [None]
  - NAUSEA [None]
  - VOMITING [None]
